FAERS Safety Report 16889882 (Version 2)
Quarter: 2019Q4

REPORT INFORMATION
  Report Type: Spontaneous
  Country: US (occurrence: US)
  Receive Date: 20191007
  Receipt Date: 20191113
  Transmission Date: 20200122
  Serious: Yes (Other)
  Sender: FDA-Public Use
  Company Number: US-DRREDDYS-USA/USA/19/0114865

PATIENT
  Sex: Female
  Weight: 59.09 kg

DRUGS (2)
  1. PROPOFOL INJECTABLE EMULSION [Suspect]
     Active Substance: PROPOFOL
     Indication: ANAESTHESIA
     Dosage: CONTINUOUS INFUSION OVER 2 GM
     Route: 065
  2. PROPOFOL INJECTABLE EMULSION [Suspect]
     Active Substance: PROPOFOL
     Dosage: BOLOUS
     Route: 065

REACTIONS (2)
  - Drug ineffective [Recovered/Resolved]
  - Product quality issue [Unknown]
